FAERS Safety Report 23821167 (Version 1)
Quarter: 2024Q2

REPORT INFORMATION
  Report Type: Spontaneous
  Country: US (occurrence: None)
  Receive Date: 20240503
  Receipt Date: 20240503
  Transmission Date: 20240715
  Serious: Yes (Hospitalization)
  Sender: FDA-Public Use
  Company Number: None

PATIENT
  Age: 55 Year
  Sex: Female
  Weight: 161.48 kg

DRUGS (1)
  1. BUPRENORPHINE [Suspect]
     Active Substance: BUPRENORPHINE

REACTIONS (8)
  - Back pain [None]
  - Confusional state [None]
  - Somnolence [None]
  - Pneumonia [None]
  - Skin candida [None]
  - Aspartate aminotransferase increased [None]
  - Blood alkaline phosphatase increased [None]
  - Lung hypoinflation [None]

NARRATIVE: CASE EVENT DATE: 20240502
